FAERS Safety Report 6717789-9 (Version None)
Quarter: 2010Q2

REPORT INFORMATION
  Report Type: 
  Country: None (occurrence: None)
  Receive Date: 20100510
  Receipt Date: 20100426
  Transmission Date: 20101027
  Serious: Yes (Hospitalization)
  Sender: FDA-Public Use
  Company Number: US-CELGENEUS-163-20785-10032752

PATIENT
  Sex: Male

DRUGS (13)
  1. THALOMID [Suspect]
     Route: 048
     Dates: start: 20100202, end: 20100308
  2. KEPPRA XR [Concomitant]
     Route: 048
  3. CELEXA [Concomitant]
     Indication: DEPRESSION
     Route: 048
  4. DARVON [Concomitant]
     Indication: PAIN
     Route: 065
  5. DEXAMETHASONE [Concomitant]
     Indication: SWELLING
     Route: 048
  6. NEXIUM [Concomitant]
     Route: 065
  7. PEPCID [Concomitant]
     Route: 048
  8. ZOCOR [Concomitant]
     Route: 048
  9. TEMODAR [Concomitant]
     Route: 065
     Dates: start: 20100202
  10. ZOFRAN [Concomitant]
     Indication: NAUSEA
     Route: 048
  11. LOMUSTINE [Concomitant]
     Route: 065
     Dates: start: 20100202
  12. HYDROCHLOROTHIAZIDE [Concomitant]
     Indication: DRUG USE FOR UNKNOWN INDICATION
     Route: 048
  13. HYDROCODONE BITARTRATE [Concomitant]
     Indication: DRUG USE FOR UNKNOWN INDICATION
     Route: 048

REACTIONS (4)
  - CELLULITIS [None]
  - DEEP VEIN THROMBOSIS [None]
  - PULMONARY EMBOLISM [None]
  - UPPER LIMB FRACTURE [None]
